FAERS Safety Report 6280819-5 (Version None)
Quarter: 2009Q3

REPORT INFORMATION
  Report Type: 
  Country: None (occurrence: None)
  Receive Date: 20090724
  Receipt Date: 20090216
  Transmission Date: 20100115
  Serious: No
  Sender: FDA-Public Use
  Company Number: A0769356A

PATIENT
  Sex: Female

DRUGS (7)
  1. AVANDIA [Suspect]
  2. METFORMIN HCL [Suspect]
     Indication: DRUG USE FOR UNKNOWN INDICATION
     Dosage: 750MG THREE TIMES PER DAY
  3. LYRICA [Concomitant]
     Dosage: 150MG TWICE PER DAY
  4. CYMBALTA [Concomitant]
     Dosage: 90MG PER DAY
  5. REQUIP [Concomitant]
     Dosage: 2MG THREE TIMES PER DAY
  6. TIZANIDINE HCL [Concomitant]
     Dosage: 2MG FOUR TIMES PER DAY
  7. VICODIN [Concomitant]
     Dosage: 750MG THREE TIMES PER DAY

REACTIONS (1)
  - ALOPECIA [None]
